FAERS Safety Report 6284124-2 (Version None)
Quarter: 2009Q3

REPORT INFORMATION
  Report Type: 
  Country: None (occurrence: None)
  Receive Date: 20090722
  Receipt Date: 20090713
  Transmission Date: 20100115
  Serious: Yes (Other)
  Sender: FDA-Public Use
  Company Number: RENA-1000329

PATIENT
  Sex: Male

DRUGS (1)
  1. RENAGEL [Suspect]
     Indication: HYPERPHOSPHATAEMIA

REACTIONS (1)
  - TOXIC ENCEPHALOPATHY [None]
